FAERS Safety Report 5648471-7 (Version None)
Quarter: 2008Q1

REPORT INFORMATION
  Report Type: 
  Country: None (occurrence: None)
  Receive Date: 20080304
  Receipt Date: 20080222
  Transmission Date: 20080703
  Serious: Yes (Other)
  Sender: FDA-Public Use
  Company Number: PHNU2008DE01082

PATIENT
  Age: 31 Year
  Sex: Male
  Weight: 52 kg

DRUGS (1)
  1. SEBIVO [Suspect]
     Indication: HEPATITIS B
     Dosage: 150 MG/D
     Route: 048
     Dates: start: 20080114, end: 20080129

REACTIONS (3)
  - BLOOD CREATINE PHOSPHOKINASE INCREASED [None]
  - MUSCULOSKELETAL DISCOMFORT [None]
  - RHABDOMYOLYSIS [None]
